FAERS Safety Report 14575433 (Version 2)
Quarter: 2019Q1

REPORT INFORMATION
  Report Type: Spontaneous
  Country: US (occurrence: US)
  Receive Date: 20180227
  Receipt Date: 20190205
  Transmission Date: 20190417
  Serious: Yes (Other)
  Sender: FDA-Public Use
  Company Number: US-ROCHE-2018280

PATIENT

DRUGS (1)
  1. XOLAIR [Suspect]
     Active Substance: OMALIZUMAB
     Indication: CHRONIC SPONTANEOUS URTICARIA
     Route: 042

REACTIONS (4)
  - Chronic spontaneous urticaria [Unknown]
  - Drug ineffective [Unknown]
  - Malignant melanoma [Unknown]
  - Non-small cell lung cancer [Unknown]
